FAERS Safety Report 5135821-3 (Version None)
Quarter: 2006Q4

REPORT INFORMATION
  Report Type: 
  Country: None (occurrence: None)
  Receive Date: 20061026
  Receipt Date: 20020517
  Transmission Date: 20070319
  Serious: Yes (Death, Life-Threatening, Hospitalization)
  Sender: FDA-Public Use
  Company Number: GB-BOEHRINGER INGELHEIM PHARMACEUTICALS, INC.-2002-UK-00262UK

PATIENT
  Sex: Female

DRUGS (4)
  1. NEVIRAPINE [Suspect]
     Indication: HIV INFECTION
     Dates: start: 19980901, end: 20000905
  2. STAVUDINE [Suspect]
     Indication: HIV INFECTION
     Route: 048
     Dates: start: 19980912, end: 20000905
  3. DIDANOSINE [Suspect]
     Indication: HIV INFECTION
     Route: 048
     Dates: start: 19980901, end: 20000905
  4. MEDICINALPRODUCT NOT SPECIFIED BY SENDER [Concomitant]

REACTIONS (17)
  - ABDOMINAL PAIN [None]
  - ACUTE RESPIRATORY DISTRESS SYNDROME [None]
  - ASPARTATE AMINOTRANSFERASE INCREASED [None]
  - CAESAREAN SECTION [None]
  - DEATH [None]
  - DRUG EXPOSURE DURING PREGNANCY [None]
  - DYSPNOEA [None]
  - HAEMODIALYSIS [None]
  - INTRA-ABDOMINAL HAEMORRHAGE [None]
  - INTRA-UTERINE DEATH [None]
  - LACTIC ACIDOSIS [None]
  - METABOLIC ACIDOSIS [None]
  - MITOCHONDRIAL CYTOPATHY [None]
  - PREGNANCY [None]
  - PREGNANCY INDUCED HYPERTENSION [None]
  - SEPSIS [None]
  - VOMITING [None]
